FAERS Safety Report 9695844 (Version 1)
Quarter: 2013Q4

REPORT INFORMATION
  Report Type: Spontaneous
  Country: US (occurrence: US)
  Receive Date: 20131119
  Receipt Date: 20131119
  Transmission Date: 20140711
  Serious: Yes (Hospitalization)
  Sender: FDA-Public Use
  Company Number: US-ASTRAZENECA-2013SE83369

PATIENT
  Age: 70 Year
  Sex: Male
  Weight: 70.3 kg

DRUGS (14)
  1. NEXIUM [Suspect]
     Indication: DYSPEPSIA
     Dosage: DAILY
     Route: 048
     Dates: start: 201205, end: 201205
  2. NEXIUM [Suspect]
     Indication: DYSPEPSIA
     Route: 048
     Dates: start: 201305
  3. PRILOSEC OTC [Suspect]
     Indication: DYSPEPSIA
     Dosage: DAILY
     Route: 048
     Dates: start: 201204, end: 201205
  4. LISINOPRIL [Suspect]
     Indication: BLOOD PRESSURE
     Route: 048
     Dates: start: 201302
  5. CARVEDILOL [Concomitant]
     Indication: BLOOD PRESSURE
     Route: 048
     Dates: start: 201204
  6. ZANTAC [Concomitant]
     Indication: DYSPEPSIA
     Route: 048
  7. ATORVASTATIN [Concomitant]
     Indication: BLOOD CHOLESTEROL
     Route: 048
     Dates: start: 201204
  8. EFFIENT [Concomitant]
     Indication: STENT PLACEMENT
     Route: 048
     Dates: start: 201204, end: 201304
  9. ASPIRIN [Concomitant]
     Indication: CARDIAC DISORDER
     Route: 048
     Dates: start: 2003
  10. ASPIRIN [Concomitant]
     Indication: CARDIAC DISORDER
     Route: 048
     Dates: start: 201204, end: 201207
  11. VIT D [Concomitant]
     Indication: NUTRITIONAL SUPPLEMENTATION
     Route: 048
     Dates: start: 2003
  12. VIT C [Concomitant]
     Indication: SUPPLEMENTATION THERAPY
     Route: 048
     Dates: start: 2003
  13. MULTIVITAMIN [Concomitant]
     Indication: SUPPLEMENTATION THERAPY
     Dosage: 1 TAB DAILY
     Route: 048
     Dates: start: 2003
  14. FLAX SEED [Concomitant]
     Indication: SUPPLEMENTATION THERAPY
     Route: 048
     Dates: start: 201204

REACTIONS (9)
  - Cough [Recovered/Resolved]
  - Malaise [Unknown]
  - Hyperhidrosis [Unknown]
  - Oropharyngeal pain [Recovered/Resolved]
  - Weight decreased [Recovered/Resolved]
  - Nausea [Recovered/Resolved]
  - Dyspepsia [Unknown]
  - Drug ineffective [Recovered/Resolved]
  - Drug dose omission [Unknown]
